FAERS Safety Report 5063836-2 (Version None)
Quarter: 2006Q3

REPORT INFORMATION
  Report Type: 
  Country: None (occurrence: None)
  Receive Date: 20060703
  Receipt Date: 20051104
  Transmission Date: 20061208
  Serious: Yes (Life-Threatening)
  Sender: FDA-Public Use
  Company Number: 2005S1010940

PATIENT
  Age: 58 Year
  Sex: Female

DRUGS (11)
  1. CLOZAPINE [Suspect]
     Indication: BIPOLAR DISORDER
     Dosage: 300 MG;QD;PO
     Route: 048
     Dates: start: 20021201, end: 20051026
  2. IBUPROFEN [Suspect]
     Indication: ARTHRITIS
     Dosage: 600 MG;TID;PO
     Route: 048
     Dates: start: 20051006, end: 20051020
  3. ATENOLOL [Concomitant]
  4. ATORVASTATIN CALCIUM [Concomitant]
  5. BUPROPION HCL [Concomitant]
  6. FENOFIBRATE [Concomitant]
  7. GALANTAMINE HYDROBROMIDE [Concomitant]
  8. HYDROBROMIDE [Concomitant]
  9. FERROUS SULFATE TAB [Concomitant]
  10. SERTRALINE [Concomitant]
  11. CYANOCOBALAMIN [Concomitant]

REACTIONS (2)
  - AGRANULOCYTOSIS [None]
  - LEUKOPENIA [None]
